FAERS Safety Report 8282429-7 (Version None)
Quarter: 2012Q2

REPORT INFORMATION
  Report Type: 
  Country: None (occurrence: None)
  Receive Date: 20120413
  Receipt Date: 20120406
  Transmission Date: 20120825
  Serious: Yes (Other)
  Sender: FDA-Public Use
  Company Number: US-TEVA-332567USA

PATIENT
  Sex: Female
  Weight: 76.19 kg

DRUGS (4)
  1. THYROID THERAPY [Concomitant]
  2. ANTI-ASTHMATICS [Concomitant]
  3. FEXOFENADINE [Suspect]
     Indication: HYPERSENSITIVITY
     Dosage: 60 MILLIGRAM;
     Route: 048
     Dates: start: 20120331, end: 20120401
  4. ATORVASTATIN [Concomitant]

REACTIONS (5)
  - ABDOMINAL PAIN [None]
  - GASTROINTESTINAL HYPERMOTILITY [None]
  - HYPERSENSITIVITY [None]
  - INFLAMMATORY BOWEL DISEASE [None]
  - FLATULENCE [None]
